FAERS Safety Report 4714482-9 (Version None)
Quarter: 2005Q3

REPORT INFORMATION
  Report Type: 
  Country: None (occurrence: None)
  Receive Date: 20050714
  Receipt Date: 20050711
  Transmission Date: 20060218
  Serious: Yes (Life-Threatening, Other)
  Sender: FDA-Public Use
  Company Number: 200512315FR

PATIENT
  Age: 50 Year
  Sex: Female

DRUGS (1)
  1. LANTUS [Suspect]
     Indication: SUICIDE ATTEMPT
     Route: 042
     Dates: start: 20050707, end: 20050707

REACTIONS (5)
  - HYPOGLYCAEMIC COMA [None]
  - INTENTIONAL MISUSE [None]
  - NERVOUS SYSTEM DISORDER [None]
  - OVERDOSE [None]
  - SUICIDE ATTEMPT [None]
